FAERS Safety Report 16449616 (Version 1)
Quarter: 2019Q2

REPORT INFORMATION
  Report Type: Report from Study
  Country: ES (occurrence: ES)
  Receive Date: 20190619
  Receipt Date: 20190619
  Transmission Date: 20190711
  Serious: Yes (Hospitalization)
  Sender: FDA-Public Use
  Company Number: ES-ELI_LILLY_AND_COMPANY-ES201906004022

PATIENT
  Sex: Female

DRUGS (6)
  1. RANITIDINA RANITIDINE HYDROCHLORIDE [Concomitant]
     Indication: GASTROINTESTINAL DISORDER
     Dosage: 2 DOSAGE FORM, DAILY
  2. LEVOGASTROL [Concomitant]
     Active Substance: LEVOSULPIRIDE
     Indication: IRRITABLE BOWEL SYNDROME
     Dosage: 1 DOSAGE FORM, DAILY
  3. ELIQUIS [Concomitant]
     Active Substance: APIXABAN
     Indication: BLOOD DISORDER
     Dosage: 2 DOSAGE FORM, DAILY (2.5)
  4. TERIPARATIDE [Suspect]
     Active Substance: TERIPARATIDE
     Indication: OSTEOPOROSIS
     Dosage: 20 UG, DAILY
     Route: 058
     Dates: start: 20190323
  5. DEZACOR [Concomitant]
     Active Substance: DEFLAZACORT
     Indication: OSTEOARTHRITIS
     Dosage: 1 DOSAGE FORM, DAILY
  6. BISOPROLOL [Concomitant]
     Active Substance: BISOPROLOL
     Indication: TACHYCARDIA
     Dosage: 2 DOSAGE FORM, DAILY

REACTIONS (2)
  - Haemoglobin decreased [Recovered/Resolved]
  - Red blood cell count decreased [Recovered/Resolved]

NARRATIVE: CASE EVENT DATE: 20190531
